FAERS Safety Report 5739269-X (Version None)
Quarter: 2008Q2

REPORT INFORMATION
  Report Type: 
  Country: None (occurrence: None)
  Receive Date: 20080515
  Receipt Date: 20080509
  Transmission Date: 20081010
  Serious: Yes (Life-Threatening, Hospitalization)
  Sender: FDA-Public Use
  Company Number: US-BRISTOL-MYERS SQUIBB COMPANY-13805080

PATIENT
  Age: 51 Year
  Sex: Male
  Weight: 95 kg

DRUGS (10)
  1. METFORMIN HCL [Suspect]
     Indication: INSULIN-REQUIRING TYPE 2 DIABETES MELLITUS
     Dates: start: 20070416, end: 20070524
  2. AMARYL [Suspect]
     Indication: INSULIN-REQUIRING TYPE 2 DIABETES MELLITUS
     Route: 048
     Dates: start: 20070416, end: 20070524
  3. FLEXERIL [Concomitant]
  4. NEXIUM [Concomitant]
  5. COMPAZINE [Concomitant]
  6. HYDROCHLOROTHIAZIDE [Concomitant]
     Dates: start: 20070305
  7. LOTREL [Concomitant]
     Dates: start: 20070305
  8. LIPITOR [Concomitant]
  9. MACROGOL [Concomitant]
  10. HYOSCYAMINE SULFATE [Concomitant]

REACTIONS (1)
  - HYPOGLYCAEMIA [None]
